FAERS Safety Report 12299683 (Version 1)
Quarter: 2016Q2

REPORT INFORMATION
  Report Type: Spontaneous
  Country: US (occurrence: None)
  Receive Date: 20160422
  Receipt Date: 20160422
  Transmission Date: 20160815
  Serious: Yes (Life-Threatening, Hospitalization, Disabling)
  Sender: FDA-Public Use
  Company Number: None

PATIENT
  Age: 82 Year
  Sex: Male
  Weight: 81.6 kg

DRUGS (7)
  1. ATORVASTATIN [Concomitant]
     Active Substance: ATORVASTATIN
  2. HYDROCHLORTHIAZIDE-VALSARTAN [Concomitant]
  3. RIVAROXABAN [Concomitant]
     Active Substance: RIVAROXABAN
  4. LEVOTHYROXINE. [Concomitant]
     Active Substance: LEVOTHYROXINE
  5. INSULIN LISPRO [Suspect]
     Active Substance: INSULIN LISPRO
     Indication: DIABETES MELLITUS
     Route: 058
     Dates: start: 20150627, end: 20160419
  6. LOVENOX [Concomitant]
     Active Substance: ENOXAPARIN SODIUM
  7. LATANOPROST. [Concomitant]
     Active Substance: LATANOPROST

REACTIONS (3)
  - Coma [None]
  - Treatment noncompliance [None]
  - Hypoglycaemia [None]

NARRATIVE: CASE EVENT DATE: 20160419
